FAERS Safety Report 9801413 (Version 1)
Quarter: 2014Q1

REPORT INFORMATION
  Report Type: Spontaneous
  Country: FR (occurrence: FR)
  Receive Date: 20140107
  Receipt Date: 20140107
  Transmission Date: 20141002
  Serious: Yes (Hospitalization)
  Sender: FDA-Public Use
  Company Number: FR-PFIZER INC-2014002651

PATIENT
  Age: 77 Year
  Sex: Female

DRUGS (11)
  1. AMIODARONE HCL [Suspect]
     Dosage: 1 DF, ONCE DAILY
     Route: 048
     Dates: end: 20131102
  2. DIGOXINE NATIVELLE [Suspect]
     Dosage: 1 DF, ONCE DAILY
     Route: 048
     Dates: end: 20131102
  3. PREVISCAN [Suspect]
     Dosage: 1 DF, ONCE DAILY
     Route: 048
     Dates: end: 20131102
  4. LASILIX [Concomitant]
  5. INEXIUM [Concomitant]
  6. TARDYFERON [Concomitant]
  7. DOLIPRANE [Concomitant]
  8. VOLTARENE EMULGEL [Concomitant]
  9. ADROVANCE [Concomitant]
  10. KARDEGIC [Concomitant]
  11. CRESTOR [Concomitant]

REACTIONS (8)
  - Accidental overdose [Recovered/Resolved]
  - Diarrhoea [Recovered/Resolved]
  - Nausea [Recovered/Resolved]
  - Vomiting [Recovered/Resolved]
  - Vertigo [Recovered/Resolved]
  - Bradycardia [Recovered/Resolved]
  - Atrioventricular block [Recovered/Resolved]
  - Device malfunction [Recovered/Resolved]
